FAERS Safety Report 6233328-3 (Version None)
Quarter: 2009Q2

REPORT INFORMATION
  Report Type: 
  Country: None (occurrence: None)
  Receive Date: 20090612
  Receipt Date: 20090529
  Transmission Date: 20091009
  Serious: Yes (Hospitalization)
  Sender: FDA-Public Use
  Company Number: US-WYE-H09546109

PATIENT
  Age: 45 Year
  Sex: Male

DRUGS (3)
  1. PRISTIQ [Suspect]
     Indication: DEPRESSION
     Dosage: 50 MG 1X PER 1DAY, ORAL, 100MG 1XPER 1DAY, ORAL
     Route: 048
     Dates: end: 20090101
  2. PRISTIQ [Suspect]
     Indication: DEPRESSION
     Dosage: 50 MG 1X PER 1DAY, ORAL, 100MG 1XPER 1DAY, ORAL
     Route: 048
     Dates: start: 20090101, end: 20090401
  3. PRISTIQ [Suspect]
     Indication: DEPRESSION
     Dosage: 50 MG 1X PER 1DAY, ORAL, 100MG 1XPER 1DAY, ORAL
     Route: 048
     Dates: start: 20080101

REACTIONS (2)
  - ABDOMINAL PAIN [None]
  - RENAL MASS [None]
